FAERS Safety Report 6380679-8 (Version None)
Quarter: 2009Q3

REPORT INFORMATION
  Report Type: 
  Country: None (occurrence: None)
  Receive Date: 20090929
  Receipt Date: 20090902
  Transmission Date: 20100115
  Serious: No
  Sender: FDA-Public Use
  Company Number: US-BAYER-200914252BCC

PATIENT
  Age: 18 Year
  Sex: Female
  Weight: 62 kg

DRUGS (2)
  1. ALEVE [Suspect]
     Indication: HEADACHE
     Dosage: UNIT DOSE: 220 MG
     Route: 048
     Dates: start: 20090902
  2. BICILLIN [Concomitant]
     Indication: RHEUMATIC FEVER
     Dosage: TAKES AN INJECTION OF BICILLIN EVERY 28 DAYS.

REACTIONS (3)
  - FOREIGN BODY TRAUMA [None]
  - HEADACHE [None]
  - OROPHARYNGEAL PAIN [None]
